FAERS Safety Report 7505575-1 (Version None)
Quarter: 2011Q2

REPORT INFORMATION
  Report Type: 
  Country: None (occurrence: None)
  Receive Date: 20110526
  Receipt Date: 20110523
  Transmission Date: 20111010
  Serious: Yes (Other)
  Sender: FDA-Public Use
  Company Number: BR-PFIZER INC-2011110519

PATIENT
  Age: 26 Year
  Sex: Female
  Weight: 80 kg

DRUGS (1)
  1. CELEBREX [Suspect]
     Indication: LIMB INJURY
     Dosage: 100 MG, UNK
     Route: 048
     Dates: start: 20110522, end: 20110522

REACTIONS (5)
  - ERYTHEMA [None]
  - MALAISE [None]
  - PRURITUS [None]
  - HYPERHIDROSIS [None]
  - RASH MACULAR [None]
